FAERS Safety Report 7514001-8 (Version None)
Quarter: 2011Q2

REPORT INFORMATION
  Report Type: 
  Country: None (occurrence: None)
  Receive Date: 20110531
  Receipt Date: 20110518
  Transmission Date: 20111010
  Serious: Yes (Other)
  Sender: FDA-Public Use
  Company Number: US-UCBSA-033248

PATIENT
  Sex: Female

DRUGS (4)
  1. KEPPRA XR [Suspect]
     Indication: MIGRAINE
  2. KEPPRA XR [Suspect]
     Dates: start: 20110101
  3. KEPPRA XR [Suspect]
     Indication: EPILEPSY
  4. KEPPRA XR [Suspect]
     Dates: start: 20110101

REACTIONS (2)
  - PREGNANCY [None]
  - ABORTION SPONTANEOUS [None]
